FAERS Safety Report 5781727-6 (Version None)
Quarter: 2008Q2

REPORT INFORMATION
  Report Type: 
  Country: None (occurrence: None)
  Receive Date: 20080623
  Receipt Date: 20080522
  Transmission Date: 20081010
  Serious: Yes (Hospitalization, Other)
  Sender: FDA-Public Use
  Company Number: SE-BRISTOL-MYERS SQUIBB COMPANY-14234876

PATIENT
  Age: 71 Year
  Sex: Male

DRUGS (6)
  1. SENDOXAN [Suspect]
     Indication: CHRONIC LYMPHOCYTIC LEUKAEMIA
     Route: 042
     Dates: start: 20080213, end: 20080213
  2. DOXORUBICIN HCL [Suspect]
     Indication: CHRONIC LYMPHOCYTIC LEUKAEMIA
     Dosage: 1 DOSAGE FORM = 2MG/ML INJ.
     Dates: start: 20080213, end: 20080213
  3. DELTISON [Suspect]
     Indication: CHRONIC LYMPHOCYTIC LEUKAEMIA
     Route: 048
     Dates: start: 20080213, end: 20080217
  4. ONCOVIN [Suspect]
     Indication: CHRONIC LYMPHOCYTIC LEUKAEMIA
     Dosage: 1 DOSAGE FORM = 1MG/ML.
     Dates: start: 20080213, end: 20080213
  5. CARBAMAZEPINE [Concomitant]
     Route: 048
  6. ACYCLOVIR [Concomitant]
     Route: 048

REACTIONS (2)
  - FATIGUE [None]
  - PYREXIA [None]
